FAERS Safety Report 11124675 (Version 1)
Quarter: 2015Q2

REPORT INFORMATION
  Report Type: Spontaneous
  Country: US (occurrence: US)
  Receive Date: 20150520
  Receipt Date: 20150520
  Transmission Date: 20150821
  Serious: Yes (Other)
  Sender: FDA-Public Use
  Company Number: US-NOVOPROD-449760

PATIENT
  Age: 77 Year
  Sex: Female

DRUGS (1)
  1. VICTOZA [Suspect]
     Active Substance: LIRAGLUTIDE
     Indication: PRODUCT USED FOR UNKNOWN INDICATION
     Route: 058

REACTIONS (5)
  - Dyspnoea [Unknown]
  - Weight increased [Unknown]
  - Peripheral swelling [Unknown]
  - Balance disorder [Unknown]
  - Atrial fibrillation [Unknown]
